FAERS Safety Report 9681404 (Version 1)
Quarter: 2013Q4

REPORT INFORMATION
  Report Type: Spontaneous
  Country: CZ (occurrence: CZ)
  Receive Date: 20131111
  Receipt Date: 20131111
  Transmission Date: 20140711
  Serious: Yes (Other)
  Sender: FDA-Public Use
  Company Number: CZ-CELGENEUS-217-21660-13105302

PATIENT
  Age: 72 Year
  Sex: 0

DRUGS (4)
  1. ABRAXANE [Suspect]
     Indication: METASTASES TO PERITONEUM
     Route: 041
  2. ABRAXANE [Suspect]
     Indication: METASTASES TO LIVER
  3. GEMCITABIN [Concomitant]
     Indication: METASTASES TO PERITONEUM
     Route: 065
  4. GEMCITABIN [Concomitant]
     Indication: METASTASES TO LIVER

REACTIONS (4)
  - Ascites [Unknown]
  - Ascites [Unknown]
  - Pyrexia [Unknown]
  - Abdominal pain [Unknown]
